FAERS Safety Report 6200848-7 (Version None)
Quarter: 2009Q2

REPORT INFORMATION
  Report Type: 
  Country: None (occurrence: None)
  Receive Date: 20090522
  Receipt Date: 20081006
  Transmission Date: 20091009
  Serious: Yes (Other)
  Sender: FDA-Public Use
  Company Number: US-ALEXION-A200800237

PATIENT
  Sex: Male

DRUGS (11)
  1. SOLIRIS [Suspect]
     Indication: PAROXYSMAL NOCTURNAL HAEMOGLOBINURIA
     Dosage: 600 MG, SINGLE
     Route: 042
     Dates: start: 20080715, end: 20080715
  2. SOLIRIS [Suspect]
     Dosage: 600 MG, SINGLE
     Route: 042
     Dates: start: 20080722, end: 20080722
  3. SOLIRIS [Suspect]
     Dosage: 600 MG, SINGLE
     Route: 042
     Dates: start: 20080729, end: 20080729
  4. SOLIRIS [Suspect]
     Dosage: 600 MG, SINGLE
     Route: 042
     Dates: start: 20080805, end: 20080805
  5. SOLIRIS [Suspect]
     Dosage: 900 MG, SINGLE
     Route: 042
     Dates: start: 20080819, end: 20080819
  6. SOLIRIS [Suspect]
     Dosage: 900 MG, SINGLE
     Route: 042
     Dates: start: 20080902, end: 20080902
  7. SOLIRIS [Suspect]
     Dosage: 900 MG, SINGLE
     Route: 042
     Dates: start: 20080916, end: 20080916
  8. SOLIRIS [Suspect]
     Dosage: 900 MG, Q14 DAYS
     Route: 042
     Dates: start: 20080923
  9. FOLIC ACID [Concomitant]
  10. VITAMIN B COMPLEX /00003501/ [Concomitant]
  11. MULTIVITAMIN /00831701/ [Concomitant]

REACTIONS (3)
  - ACUTE SINUSITIS [None]
  - NASOPHARYNGITIS [None]
  - PYREXIA [None]
